FAERS Safety Report 12867490 (Version 1)
Quarter: 2016Q4

REPORT INFORMATION
  Report Type: Spontaneous
  Country: US (occurrence: US)
  Receive Date: 20161020
  Receipt Date: 20161020
  Transmission Date: 20170207
  Serious: No
  Sender: FDA-Public Use
  Company Number: US-PFIZER INC-2940988

PATIENT
  Age: 56 Year
  Sex: Female
  Weight: 55.79 kg

DRUGS (3)
  1. NORMAL SALINE [Concomitant]
     Active Substance: SODIUM CHLORIDE
     Dosage: 500 ML, ONE TIME
     Route: 058
     Dates: start: 20150707, end: 20150707
  2. SODIUM BICARBONATE. [Suspect]
     Active Substance: SODIUM BICARBONATE
     Dosage: 14 ML/500ML NSS,ONE TIME
     Route: 058
     Dates: start: 20150707, end: 20150707
  3. LIDOCAINE HYDROCHLORIDE. [Concomitant]
     Active Substance: LIDOCAINE HYDROCHLORIDE
     Indication: ANAESTHESIA
     Dosage: 60 ML/500ML NSS,ONE TIME
     Route: 058
     Dates: start: 20150707, end: 20150707

REACTIONS (4)
  - Injection site erythema [Recovering/Resolving]
  - Product contamination [Recovering/Resolving]
  - Poor quality drug administered [Recovering/Resolving]
  - Injection site warmth [Recovering/Resolving]

NARRATIVE: CASE EVENT DATE: 20150708
